FAERS Safety Report 9257615 (Version 3)
Quarter: 2013Q2

REPORT INFORMATION
  Report Type: Spontaneous
  Country: JP (occurrence: JP)
  Receive Date: 20130426
  Receipt Date: 20130612
  Transmission Date: 20140414
  Serious: Yes (Death, Other)
  Sender: FDA-Public Use
  Company Number: JP-PFIZER INC-2013127125

PATIENT
  Age: 89 Year
  Sex: Female

DRUGS (3)
  1. VFEND [Suspect]
     Dosage: UNK
     Route: 041
     Dates: start: 20130413, end: 20130421
  2. VFEND [Concomitant]
     Dosage: 400 MG DAILY
     Route: 048
     Dates: start: 20130322, end: 20130412
  3. ZYVOX [Concomitant]
     Indication: STAPHYLOCOCCAL INFECTION
     Dosage: 1200 MG DAILY
     Route: 041

REACTIONS (3)
  - Pneumothorax [Fatal]
  - Pneumonia [Fatal]
  - Drug level increased [Unknown]
